FAERS Safety Report 8075958-2 (Version None)
Quarter: 2012Q1

REPORT INFORMATION
  Report Type: 
  Country: None (occurrence: None)
  Receive Date: 20120127
  Receipt Date: 20110328
  Transmission Date: 20120608
  Serious: No
  Sender: FDA-Public Use
  Company Number: US-GLAXOSMITHKLINE-A0881699A

PATIENT
  Age: 56 Year
  Sex: Female
  Weight: 58.2 kg

DRUGS (8)
  1. BUPROPION HYDROCHLORIDE [Suspect]
     Indication: PRODUCT USED FOR UNKNOWN INDICATION
     Route: 065
  2. CYTOMEL [Concomitant]
     Dosage: 2.5MCG FOUR TIMES PER DAY
  3. SYNTHROID [Concomitant]
     Dosage: 137MCG PER DAY
  4. FLAX SEED OIL [Concomitant]
     Dosage: 750MG TWICE PER DAY
  5. WELLBUTRIN [Suspect]
     Indication: DEPRESSION
     Route: 048
     Dates: start: 19920101
  6. NASCOBAL [Concomitant]
     Dosage: 1000MCG PER DAY
     Route: 045
  7. FOLIC ACID [Concomitant]
     Dosage: .25TAB PER DAY
  8. PROBIOTIC [Concomitant]
     Dosage: 1000MG PER DAY

REACTIONS (5)
  - DRUG INEFFECTIVE [None]
  - FEELING ABNORMAL [None]
  - DEPRESSION [None]
  - MALAISE [None]
  - PRODUCT QUALITY ISSUE [None]
